FAERS Safety Report 8560737-X (Version None)
Quarter: 2012Q3

REPORT INFORMATION
  Report Type: 
  Country: None (occurrence: None)
  Receive Date: 20120802
  Receipt Date: 20120730
  Transmission Date: 20120928
  Serious: Yes (Other)
  Sender: FDA-Public Use
  Company Number: PHEH2012US011739

PATIENT
  Sex: Female

DRUGS (7)
  1. VITAMIN D [Concomitant]
     Dosage: 5000 U, DAILY
  2. CYMBALTA [Concomitant]
     Dosage: 20 MG, DAILY
  3. GILENYA [Suspect]
     Indication: MULTIPLE SCLEROSIS
     Dosage: 0.5 MG, QD
     Route: 048
     Dates: start: 20110510
  4. TRAZODONE HYDROCHLORIDE [Concomitant]
     Dosage: 100 MG, DAILY
  5. HYDROCHLOROTHIAZIDE [Concomitant]
     Dosage: 12.5 MG, DAILY
  6. CALCIUM [Concomitant]
     Dosage: 1 DF, DAILY
  7. VICODIN [Concomitant]

REACTIONS (7)
  - DEPRESSION [None]
  - FALL [None]
  - SPINAL COMPRESSION FRACTURE [None]
  - HORMONE LEVEL ABNORMAL [None]
  - WEIGHT INCREASED [None]
  - OEDEMA PERIPHERAL [None]
  - FOOT FRACTURE [None]
